FAERS Safety Report 13411563 (Version 1)
Quarter: 2017Q2

REPORT INFORMATION
  Report Type: Spontaneous
  Country: US (occurrence: US)
  Receive Date: 20170406
  Receipt Date: 20170406
  Transmission Date: 20170830
  Serious: Yes (Other)
  Sender: FDA-Public Use
  Company Number: US-PFIZER INC-2017142948

PATIENT
  Age: 57 Year
  Sex: Female

DRUGS (4)
  1. DIPHENHYDRAMINE. [Concomitant]
     Active Substance: DIPHENHYDRAMINE
     Indication: PREMEDICATION
     Dosage: 20 MG, CYCLIC (D1, 8, 15)
     Route: 042
  2. DEXAMETHASONE. [Concomitant]
     Active Substance: DEXAMETHASONE
     Indication: PREMEDICATION
     Dosage: 20 MG, CYCLIC 12 + 24 HRS PRE CHEMOTHERAPY
     Route: 048
  3. TORISEL [Suspect]
     Active Substance: TEMSIROLIMUS
     Indication: ENDOMETRIAL CANCER STAGE IV
     Dosage: 25 MG, OVER 30 TO 60 MINUTES WEEKLY
     Route: 042
     Dates: start: 20170208
  4. TORISEL [Suspect]
     Active Substance: TEMSIROLIMUS
     Dosage: 20 MG, OVER 30 TO 60 MINUTES WEEKLY
     Route: 042

REACTIONS (4)
  - Product use in unapproved indication [Unknown]
  - Toxicity to various agents [Unknown]
  - Drug hypersensitivity [Unknown]
  - Platelet count decreased [Unknown]
